FAERS Safety Report 8590441-3 (Version None)
Quarter: 2012Q3

REPORT INFORMATION
  Report Type: 
  Country: None (occurrence: None)
  Receive Date: 20120813
  Receipt Date: 20120607
  Transmission Date: 20120928
  Serious: Yes (Hospitalization)
  Sender: FDA-Public Use
  Company Number: US-ELI_LILLY_AND_COMPANY-US201206002736

PATIENT
  Age: 77 Year
  Sex: Female

DRUGS (2)
  1. CIALIS [Suspect]
  2. REMODULIN [Concomitant]
     Dosage: UNK

REACTIONS (3)
  - DYSPNOEA [None]
  - OEDEMA [None]
  - INTENTIONAL DRUG MISUSE [None]
